FAERS Safety Report 11333171 (Version 1)
Quarter: 2015Q3

REPORT INFORMATION
  Report Type: Spontaneous
  Country: US (occurrence: US)
  Receive Date: 20150803
  Receipt Date: 20150803
  Transmission Date: 20151125
  Serious: No
  Sender: FDA-Public Use
  Company Number: US-ELI_LILLY_AND_COMPANY-US200711000253

PATIENT
  Age: 33 Year
  Sex: Female

DRUGS (5)
  1. SEROQUEL [Concomitant]
     Active Substance: QUETIAPINE FUMARATE
  2. ABILIFY [Concomitant]
     Active Substance: ARIPIPRAZOLE
  3. LAMICTAL [Concomitant]
     Active Substance: LAMOTRIGINE
  4. ZYPREXA [Suspect]
     Active Substance: OLANZAPINE
     Indication: BIPOLAR DISORDER
     Dosage: 15 MG, DAILY (1/D)
     Route: 048
     Dates: start: 20071018
  5. PROZAC [Concomitant]
     Active Substance: FLUOXETINE HYDROCHLORIDE

REACTIONS (5)
  - Abdominal pain [Unknown]
  - Abdominal distension [Unknown]
  - Gastric disorder [Unknown]
  - Abdominal distension [Unknown]
  - Weight increased [Not Recovered/Not Resolved]

NARRATIVE: CASE EVENT DATE: 200710
